FAERS Safety Report 20514770 (Version 1)
Quarter: 2022Q1

REPORT INFORMATION
  Report Type: Spontaneous
  Country: US (occurrence: None)
  Receive Date: 20220224
  Receipt Date: 20220224
  Transmission Date: 20220423
  Serious: No
  Sender: FDA-Public Use
  Company Number: None

PATIENT
  Sex: Female

DRUGS (1)
  1. SOTROVIMAB [Suspect]
     Active Substance: SOTROVIMAB
     Indication: COVID-19

REACTIONS (1)
  - Infusion site pruritus [None]

NARRATIVE: CASE EVENT DATE: 20220223
